FAERS Safety Report 8366210-6 (Version None)
Quarter: 2012Q2

REPORT INFORMATION
  Report Type: 
  Country: None (occurrence: None)
  Receive Date: 20120517
  Receipt Date: 20120510
  Transmission Date: 20120825
  Serious: Yes (Hospitalization, Other)
  Sender: FDA-Public Use
  Company Number: US-ASTELLAS-2012US004685

PATIENT
  Sex: Female

DRUGS (1)
  1. TARCEVA [Suspect]
     Indication: NON-SMALL CELL LUNG CANCER
     Dosage: UNK
     Route: 048
     Dates: start: 20111123, end: 20120330

REACTIONS (5)
  - MOVEMENT DISORDER [None]
  - NEOPLASM MALIGNANT [None]
  - DRUG RESISTANCE [None]
  - APHASIA [None]
  - GENERAL PHYSICAL HEALTH DETERIORATION [None]
